FAERS Safety Report 5146833-8 (Version None)
Quarter: 2006Q4

REPORT INFORMATION
  Report Type: 
  Country: None (occurrence: None)
  Receive Date: 20061107
  Receipt Date: 20061107
  Transmission Date: 20070319
  Serious: Yes (Hospitalization)
  Sender: FDA-Public Use
  Company Number: None

PATIENT
  Sex: Male
  Weight: 73.3 kg

DRUGS (9)
  1. IRINOTECAN HCL [Suspect]
     Indication: GLIOBLASTOMA MULTIFORME
     Dosage: 125MG/M2   DAY 1, 8, 22, 29    IV
     Route: 042
     Dates: start: 20060829
  2. IRINOTECAN HCL [Suspect]
     Indication: GLIOBLASTOMA MULTIFORME
     Dosage: 125MG/M2   DAY 1, 8, 22, 29    IV
     Route: 042
     Dates: start: 20060905
  3. IRINOTECAN HCL [Suspect]
     Indication: GLIOBLASTOMA MULTIFORME
     Dosage: 125MG/M2   DAY 1, 8, 22, 29    IV
     Route: 042
     Dates: start: 20060919
  4. IRINOTECAN HCL [Suspect]
     Indication: GLIOBLASTOMA MULTIFORME
     Dosage: 125MG/M2   DAY 1, 8, 22, 29    IV
     Route: 042
     Dates: start: 20060926
  5. TEMODAR [Suspect]
     Indication: GLIOBLASTOMA MULTIFORME
     Dosage: 200MG/M2   DAYS 1-5   PO
     Route: 048
     Dates: start: 20060829, end: 20060902
  6. DECADRON [Concomitant]
  7. ZANTAC [Concomitant]
  8. FLORINEF [Concomitant]
  9. MULTI-VITAMIN [Concomitant]

REACTIONS (19)
  - ANAEMIA [None]
  - ARRHYTHMIA [None]
  - CARDIAC DISORDER [None]
  - CENTRAL NERVOUS SYSTEM INFECTION [None]
  - EJECTION FRACTION DECREASED [None]
  - HYPOALBUMINAEMIA [None]
  - HYPOTENSION [None]
  - IMMUNOSUPPRESSION [None]
  - LOSS OF CONSCIOUSNESS [None]
  - LUNG INFILTRATION [None]
  - MOUNTAIN SICKNESS ACUTE [None]
  - OEDEMA [None]
  - PNEUMONITIS [None]
  - PYREXIA [None]
  - RESPIRATORY DISTRESS [None]
  - SERUM FERRITIN INCREASED [None]
  - TROPONIN INCREASED [None]
  - VENTRICULAR DYSFUNCTION [None]
  - VENTRICULAR HYPOKINESIA [None]
